FAERS Safety Report 17564001 (Version 1)
Quarter: 2020Q1

REPORT INFORMATION
  Report Type: Report from Study
  Country: IT (occurrence: IT)
  Receive Date: 20200320
  Receipt Date: 20200320
  Transmission Date: 20200409
  Serious: Yes (Other)
  Sender: FDA-Public Use
  Company Number: IT-TEVA-2020-IT-1205466

PATIENT
  Age: 78 Year
  Sex: Female

DRUGS (8)
  1. TRIATEC [Concomitant]
  2. LASIX [Concomitant]
     Active Substance: FUROSEMIDE
  3. FOSAVANCE [Concomitant]
     Active Substance: ALENDRONATE SODIUM\CHOLECALCIFEROL
  4. METHOTREXATE. [Suspect]
     Active Substance: METHOTREXATE
     Indication: RHEUMATOID ARTHRITIS
     Dosage: 10 MG
     Route: 030
     Dates: start: 20190101, end: 20200103
  5. FOLINA 5 MG CAPSULE MOLLI [Concomitant]
  6. CATAPRESAN TTS-2 5 MG CEROTTI TRANSDERMICI [Concomitant]
     Active Substance: CLONIDINE
  7. PANTOPRAZOLO AUROBINDO ITALIA 20 MG COMPRESSE GASTRORESISTENTI [Concomitant]
  8. INDOXEN 25 MG CAPSULE RIGIDE [Concomitant]
     Active Substance: INDOMETHACIN

REACTIONS (3)
  - Face oedema [Recovering/Resolving]
  - Oropharyngeal pain [Recovering/Resolving]
  - Pruritus [Recovering/Resolving]

NARRATIVE: CASE EVENT DATE: 20200103
